FAERS Safety Report 9969924 (Version 1)
Quarter: 2014Q1

REPORT INFORMATION
  Report Type: Spontaneous
  Country: US (occurrence: US)
  Receive Date: 20140306
  Receipt Date: 20140306
  Transmission Date: 20141002
  Serious: No
  Sender: FDA-Public Use
  Company Number: US-SANOFI-AVENTIS-2013SA028590

PATIENT
  Age: 77 Year
  Sex: Female

DRUGS (1)
  1. GAVISCON [Suspect]
     Indication: HERNIA
     Dates: start: 20130310, end: 20130310

REACTIONS (4)
  - Oropharyngeal pain [Recovered/Resolved]
  - Oral pain [Recovered/Resolved]
  - Throat irritation [Recovered/Resolved]
  - Drug administration error [Unknown]
